FAERS Safety Report 6702946-8 (Version None)
Quarter: 2010Q2

REPORT INFORMATION
  Report Type: 
  Country: None (occurrence: None)
  Receive Date: 20100429
  Receipt Date: 20100421
  Transmission Date: 20101027
  Serious: Yes (Hospitalization, Other)
  Sender: FDA-Public Use
  Company Number: US-MERCK-0908USA01685

PATIENT
  Age: 52 Year
  Sex: Female

DRUGS (3)
  1. FOSAMAX [Suspect]
     Indication: OSTEOPOROSIS
     Route: 048
     Dates: start: 19990701, end: 20060801
  2. FOSAMAX [Suspect]
     Indication: CALCIUM DEFICIENCY
     Route: 048
     Dates: start: 19990701, end: 20060801
  3. SYNTHROID [Concomitant]
     Indication: HYPOTHYROIDISM
     Route: 065

REACTIONS (31)
  - ANAEMIA [None]
  - AORTIC VALVE INCOMPETENCE [None]
  - BILIARY DILATATION [None]
  - CARDIAC MURMUR [None]
  - DIVERTICULUM [None]
  - DYSGEUSIA [None]
  - ELECTROCARDIOGRAM ST SEGMENT ABNORMAL [None]
  - GASTRITIS EROSIVE [None]
  - GASTROINTESTINAL DISORDER [None]
  - GINGIVAL BLEEDING [None]
  - GINGIVAL DISORDER [None]
  - GINGIVITIS [None]
  - HYPOAESTHESIA ORAL [None]
  - IRON DEFICIENCY [None]
  - JAW FRACTURE [None]
  - JOINT DISLOCATION [None]
  - LUNG NEOPLASM [None]
  - NEURALGIA [None]
  - ORAL INFECTION [None]
  - ORAL PAIN [None]
  - OSTEOMYELITIS [None]
  - OSTEONECROSIS [None]
  - PAIN IN JAW [None]
  - PERICARDIAL EFFUSION [None]
  - PULMONARY FIBROSIS [None]
  - PURULENT DISCHARGE [None]
  - RED BLOOD CELL SEDIMENTATION RATE INCREASED [None]
  - SWELLING FACE [None]
  - TOOTH EXTRACTION [None]
  - UPPER LIMB FRACTURE [None]
  - WEIGHT DECREASED [None]
